FAERS Safety Report 10954874 (Version 2)
Quarter: 2015Q2

REPORT INFORMATION
  Report Type: Report from Study
  Country: US (occurrence: US)
  Receive Date: 20150325
  Receipt Date: 20150417
  Transmission Date: 20150821
  Serious: Yes (Death, Hospitalization, Other)
  Sender: FDA-Public Use
  Company Number: PHEH2015US004717

PATIENT
  Age: 74 Year
  Sex: Male
  Weight: 81.36 kg

DRUGS (4)
  1. EXJADE [Suspect]
     Active Substance: DEFERASIROX
     Dosage: 3 DF, QD
     Route: 048
     Dates: start: 20141211
  2. METFORMIN HCL [Concomitant]
     Active Substance: METFORMIN HYDROCHLORIDE
     Indication: PRODUCT USED FOR UNKNOWN INDICATION
     Dosage: UNK
     Route: 065
  3. JANUMET [Concomitant]
     Active Substance: METFORMIN HYDROCHLORIDE\SITAGLIPTIN PHOSPHATE
     Indication: PRODUCT USED FOR UNKNOWN INDICATION
     Route: 065
  4. EXJADE [Suspect]
     Active Substance: DEFERASIROX
     Indication: PRODUCT USED FOR UNKNOWN INDICATION
     Dosage: 3 DF, QD
     Route: 048
     Dates: start: 20130928

REACTIONS (22)
  - Acute myeloid leukaemia [Fatal]
  - Haemorrhoids [Unknown]
  - Oedema [Unknown]
  - Haematuria [Unknown]
  - Hypertension [Unknown]
  - Electrocardiogram QT prolonged [Unknown]
  - Body temperature increased [Unknown]
  - Respiratory rate increased [Unknown]
  - Bundle branch block right [Unknown]
  - Blood glucose increased [Unknown]
  - Febrile neutropenia [Recovering/Resolving]
  - Anaemia [Unknown]
  - Cellulitis [Unknown]
  - Atrial fibrillation [Recovered/Resolved]
  - Bacterial test positive [Unknown]
  - Diabetes mellitus [Unknown]
  - Skin hyperpigmentation [Unknown]
  - Myelodysplastic syndrome transformation [Fatal]
  - Sepsis [Recovered/Resolved]
  - Thrombocytopenia [Unknown]
  - Asthenia [Unknown]
  - Pancytopenia [Unknown]

NARRATIVE: CASE EVENT DATE: 20150214
